FAERS Safety Report 7373654-8 (Version None)
Quarter: 2011Q1

REPORT INFORMATION
  Report Type: 
  Country: None (occurrence: None)
  Receive Date: 20110325
  Receipt Date: 20110315
  Transmission Date: 20110831
  Serious: Yes (Hospitalization, Other)
  Sender: FDA-Public Use
  Company Number: KR-ELI_LILLY_AND_COMPANY-KR201103005209

PATIENT
  Age: 71 Year
  Sex: Female

DRUGS (2)
  1. HUMALOG MIX 75/25 [Suspect]
     Indication: TYPE 2 DIABETES MELLITUS
     Dosage: 24 U, DAILY (1/D)
     Route: 058
     Dates: start: 20110101
  2. HUMALOG MIX 75/25 [Suspect]
     Dosage: 24 U, DAILY (1/D)

REACTIONS (4)
  - SYNCOPE [None]
  - HYPERTENSION [None]
  - ASTHENIA [None]
  - HYPERGLYCAEMIA [None]
